FAERS Safety Report 9240389 (Version 1)
Quarter: 2013Q2

REPORT INFORMATION
  Report Type: Spontaneous
  Country: US (occurrence: None)
  Receive Date: 20130417
  Receipt Date: 20130417
  Transmission Date: 20140414
  Serious: Yes (Other)
  Sender: FDA-Public Use
  Company Number: COR_00006_2013

PATIENT
  Sex: Male

DRUGS (1)
  1. CEENU [Suspect]
     Indication: MEDULLOBLASTOMA
     Dosage: DF

REACTIONS (4)
  - Retinal ischaemia [None]
  - VIth nerve paralysis [None]
  - Scotoma [None]
  - Retinal oedema [None]
